FAERS Safety Report 15395495 (Version 1)
Quarter: 2018Q3

REPORT INFORMATION
  Report Type: Spontaneous
  Country: US (occurrence: US)
  Receive Date: 20180912
  Receipt Date: 20180912
  Transmission Date: 20181010
  Serious: Yes (Other)
  Sender: FDA-Public Use
  Company Number: None

PATIENT
  Age: 62 Year
  Sex: Female
  Weight: 82.44 kg

DRUGS (17)
  1. VITAMIN A [Concomitant]
     Active Substance: VITAMIN A
  2. NEURONTIN [Concomitant]
     Active Substance: GABAPENTIN
  3. NORVASC [Concomitant]
     Active Substance: AMLODIPINE BESYLATE
  4. XANAX [Concomitant]
     Active Substance: ALPRAZOLAM
  5. LIPITOR [Concomitant]
     Active Substance: ATORVASTATIN CALCIUM
  6. HYDROCHLOROTHIAZIDE. [Concomitant]
     Active Substance: HYDROCHLOROTHIAZIDE
  7. PROAIR HFA [Concomitant]
     Active Substance: ALBUTEROL SULFATE
  8. METFORMIN [Concomitant]
     Active Substance: METFORMIN HYDROCHLORIDE
  9. NEXIUM [Concomitant]
     Active Substance: ESOMEPRAZOLE MAGNESIUM
  10. LOSARTAN. [Concomitant]
     Active Substance: LOSARTAN
  11. VITAMIN B COMPLEX [Concomitant]
     Active Substance: CYANOCOBALAMIN\DEXPANTHENOL\NIACINAMIDE\PYRIDOXINE HYDROCHLORIDE\RIBOFLAVIN 5^-PHOSPHATE SODIUM\THIAMINE HYDROCHLORIDE\VITAMIN B COMPLEX
  12. BENADRYL [Concomitant]
     Active Substance: DIPHENHYDRAMINE HYDROCHLORIDE
  13. JANUVIA [Concomitant]
     Active Substance: SITAGLIPTIN PHOSPHATE
  14. VITAMIN C [Concomitant]
     Active Substance: ASCORBIC ACID
  15. CAPECITABINE. [Suspect]
     Active Substance: CAPECITABINE
     Indication: OVARIAN CANCER
     Route: 048
     Dates: start: 20180817
  16. CAPECITABINE. [Suspect]
     Active Substance: CAPECITABINE
     Indication: OVARIAN CANCER
     Route: 048
     Dates: start: 20180817
  17. ATENOLOL. [Concomitant]
     Active Substance: ATENOLOL

REACTIONS (1)
  - Skin discolouration [None]

NARRATIVE: CASE EVENT DATE: 20180911
